FAERS Safety Report 17467206 (Version 1)
Quarter: 2020Q1

REPORT INFORMATION
  Report Type: Spontaneous
  Country: CO (occurrence: CO)
  Receive Date: 20200227
  Receipt Date: 20200227
  Transmission Date: 20200409
  Serious: Yes (Other)
  Sender: FDA-Public Use
  Company Number: CO-PFIZER INC-2020084108

PATIENT
  Age: 77 Year
  Sex: Female

DRUGS (1)
  1. REAMPLA [Suspect]
     Active Substance: PALBOCICLIB
     Dosage: 125 MG, UNK
     Route: 048
     Dates: start: 2019, end: 201911

REACTIONS (9)
  - Abdominal pain [Unknown]
  - Vision blurred [Unknown]
  - Abdominal distension [Unknown]
  - Pulmonary oedema [Unknown]
  - Tachycardia [Unknown]
  - Productive cough [Unknown]
  - Influenza [Unknown]
  - Swelling [Unknown]
  - Chest pain [Unknown]

NARRATIVE: CASE EVENT DATE: 2019
